FAERS Safety Report 10358027 (Version 2)
Quarter: 2014Q3

REPORT INFORMATION
  Report Type: Spontaneous
  Country: US (occurrence: None)
  Receive Date: 20140730
  Receipt Date: 20140813
  Transmission Date: 20150326
  Serious: Yes (Hospitalization)
  Sender: FDA-Public Use
  Company Number: AXC-2014-000396

PATIENT
  Age: 79 Year
  Sex: Female

DRUGS (2)
  1. NI [Concomitant]
     Active Substance: UNSPECIFIED INGREDIENT
  2. ZENPEP [Suspect]
     Active Substance: PANCRELIPASE\PANCRELIPASE AMYLASE\PANCRELIPASE LIPASE\PANCRELIPASE PROTEASE
     Indication: PRODUCT USED FOR UNKNOWN INDICATION

REACTIONS (3)
  - Malaise [None]
  - Terminal state [None]
  - Gastrointestinal tube insertion [None]

NARRATIVE: CASE EVENT DATE: 201407
